FAERS Safety Report 6750941-5 (Version None)
Quarter: 2010Q2

REPORT INFORMATION
  Report Type: 
  Country: None (occurrence: None)
  Receive Date: 20100602
  Receipt Date: 20100524
  Transmission Date: 20101027
  Serious: Yes (Death, Hospitalization)
  Sender: FDA-Public Use
  Company Number: GB-JNJFOC-20091003716

PATIENT
  Age: 75 Year
  Sex: Male
  Weight: 80 kg

DRUGS (6)
  1. REMICADE [Suspect]
     Indication: RHEUMATOID ARTHRITIS
     Route: 042
     Dates: start: 20041103
  2. METHOTREXATE [Concomitant]
     Dosage: MEDICATIONS TAKEN AT BASELINE
  3. PREDNISOLONE [Concomitant]
  4. BENDROFLUAZIDE [Concomitant]
  5. CELEBREX [Concomitant]
  6. DISTALGESIC [Concomitant]

REACTIONS (4)
  - CERVICAL CORD COMPRESSION [None]
  - LUNG CANCER METASTATIC [None]
  - LYMPHADENOPATHY [None]
  - METASTASES TO BONE [None]
